FAERS Safety Report 8765496 (Version 2)
Quarter: 2013Q3

REPORT INFORMATION
  Report Type: Spontaneous
  Country: DE (occurrence: DE)
  Receive Date: 20120903
  Receipt Date: 20130805
  Transmission Date: 20140515
  Serious: Yes (Other)
  Sender: FDA-Public Use
  Company Number: DE-PFIZER INC-2012210666

PATIENT
  Age: 37 Year
  Sex: Male

DRUGS (6)
  1. LYRICA [Suspect]
     Indication: SUBSTANCE ABUSE
     Dosage: 300 UNTIL 1200MG PER DAY
     Route: 048
  2. METHADDICT0 [Concomitant]
     Indication: DRUG DEPENDENCE
     Dosage: 120 MG, 1X/DAY
     Route: 048
  3. IBUFLAM [Concomitant]
     Dosage: 2400 MG, AS NEEDED
     Route: 048
  4. NOVAMINSULFON-RATIOPHARM [Concomitant]
     Dosage: 4-8 TABLETS
     Route: 048
  5. RAMILICH [Concomitant]
     Dosage: 2.5-5MG
     Route: 048
  6. BISOPROLOL [Concomitant]
     Dosage: 10MG
     Route: 048

REACTIONS (6)
  - Nightmare [Not Recovered/Not Resolved]
  - Hyperhidrosis [Not Recovered/Not Resolved]
  - Sleep disorder [Not Recovered/Not Resolved]
  - Withdrawal syndrome [Not Recovered/Not Resolved]
  - Drug dependence [Not Recovered/Not Resolved]
  - Drug abuse [Not Recovered/Not Resolved]
